FAERS Safety Report 5777283-9 (Version None)
Quarter: 2008Q2

REPORT INFORMATION
  Report Type: 
  Country: None (occurrence: None)
  Receive Date: 20080618
  Receipt Date: 20020415
  Transmission Date: 20081010
  Serious: Yes (Death, Hospitalization)
  Sender: FDA-Public Use
  Company Number: US-BAXTER-2007BH004415

PATIENT
  Age: 82 Year
  Sex: Female
  Weight: 39 kg

DRUGS (2)
  1. DIANEAL [Suspect]
     Indication: RENAL FAILURE CHRONIC
     Route: 065
  2. DIANEAL [Suspect]
     Route: 065

REACTIONS (4)
  - CHILLS [None]
  - ERYTHEMA [None]
  - PERITONITIS [None]
  - PYREXIA [None]
